FAERS Safety Report 14301070 (Version 1)
Quarter: 2017Q4

REPORT INFORMATION
  Report Type: Spontaneous
  Country: US (occurrence: US)
  Receive Date: 20171217
  Receipt Date: 20171217
  Transmission Date: 20180321
  Serious: Yes (Life-Threatening, Hospitalization, Other)
  Sender: FDA-Public Use
  Company Number: None

PATIENT
  Age: 57 Year
  Sex: Male
  Weight: 76.5 kg

DRUGS (1)
  1. AMOXICILLIN AND CLAVULANATE POTASSIUM TABLETS [Suspect]
     Active Substance: AMOXICILLIN\CLAVULANATE POTASSIUM
     Route: 048
     Dates: start: 20171215, end: 20171215

REACTIONS (5)
  - Feeling abnormal [None]
  - Swelling face [None]
  - Hypersensitivity [None]
  - Bradycardia [None]
  - Anaphylactic reaction [None]

NARRATIVE: CASE EVENT DATE: 20171215
